FAERS Safety Report 6902439-9 (Version None)
Quarter: 2010Q3

REPORT INFORMATION
  Report Type: 
  Country: None (occurrence: None)
  Receive Date: 20100803
  Receipt Date: 20080528
  Transmission Date: 20110219
  Serious: Yes (Other)
  Sender: FDA-Public Use
  Company Number: US-PFIZER INC-2008045212

PATIENT
  Sex: Female
  Weight: 73.636 kg

DRUGS (3)
  1. LYRICA [Suspect]
     Indication: FIBROMYALGIA
     Route: 048
     Dates: start: 20080101, end: 20080528
  2. LISINOPRIL [Concomitant]
     Dates: start: 19980101
  3. TOPROL-XL [Concomitant]
     Dates: start: 20070801

REACTIONS (1)
  - WEIGHT INCREASED [None]
